FAERS Safety Report 17815115 (Version 5)
Quarter: 2023Q2

REPORT INFORMATION
  Report Type: Other
  Country: AT (occurrence: AT)
  Receive Date: 20200522
  Receipt Date: 20230609
  Transmission Date: 20230721
  Serious: Yes (Other)
  Sender: FDA-Public Use
  Company Number: AT-EMA-DD-20200323-SHAIK_I-163815

PATIENT
  Age: 76 Year
  Sex: Female

DRUGS (10)
  1. RITUXIMAB [Suspect]
     Active Substance: RITUXIMAB
     Indication: Lymphoma
     Dosage: Q4W?FIRST LINE THERAPY, 8 CYCLES
     Route: 058
  2. CYTARABINE [Suspect]
     Active Substance: CYTARABINE
     Indication: Lymphoma
     Dosage: BIWEEKLY
     Route: 037
  3. POMALIDOMIDE [Suspect]
     Active Substance: POMALIDOMIDE
     Indication: Lymphoma
     Dosage: 4MG D1-21, Q28
     Route: 048
  4. TEMOZOLOMIDE [Suspect]
     Active Substance: TEMOZOLOMIDE
     Indication: Lymphoma
     Dosage: (150 MG/M2) D1-5, Q28
     Route: 048
  5. DEXAMETHASONE [Suspect]
     Active Substance: DEXAMETHASONE
     Indication: Lymphoma
     Route: 048
  6. METHOTREXATE [Concomitant]
     Active Substance: METHOTREXATE
     Indication: Ocular lymphoma
  7. METHOTREXATE [Concomitant]
     Active Substance: METHOTREXATE
     Dosage: UNK
  8. METHOTREXATE [Concomitant]
     Active Substance: METHOTREXATE
     Dosage: FIRST LINE THERAPY, 8 CYCLES
  9. OFATUMUMAB [Concomitant]
     Active Substance: OFATUMUMAB
     Indication: Ocular lymphoma
     Dosage: THIRD-LINE SYSTEMIC THERAPY, 4 CYCLES
  10. LENALIDOMIDE [Concomitant]
     Active Substance: LENALIDOMIDE
     Indication: Ocular lymphoma
     Dosage: 15 MG ON DAYS 121 EVERY 28 DAYS

REACTIONS (7)
  - Adrenal insufficiency [Recovered/Resolved]
  - Pneumonia [Recovered/Resolved]
  - Neurotoxicity [Recovered/Resolved]
  - Hypogammaglobulinaemia [Recovered/Resolved]
  - Off label use [Unknown]
  - Disease recurrence [Recovering/Resolving]
  - Ocular lymphoma [Recovering/Resolving]
